FAERS Safety Report 15835747 (Version 1)
Quarter: 2019Q1

REPORT INFORMATION
  Report Type: Spontaneous
  Country: US (occurrence: US)
  Receive Date: 20190117
  Receipt Date: 20190117
  Transmission Date: 20190417
  Serious: No
  Sender: FDA-Public Use
  Company Number: US-TRIS PHARMA, INC.-2018TRISPO01367

PATIENT

DRUGS (2)
  1. DEXTROMETHORPHAN POLISTIREX [Suspect]
     Active Substance: DEXTROMETHORPHAN HYDROBROMIDE
     Indication: PRODUCT USED FOR UNKNOWN INDICATION
     Dosage: 30 MG, UNK
     Route: 065
  2. ADVIL [Interacting]
     Active Substance: IBUPROFEN
     Indication: PRODUCT USED FOR UNKNOWN INDICATION
     Dosage: 200 MG, UNK
     Route: 065

REACTIONS (5)
  - Wrong technique in product usage process [Unknown]
  - Abdominal pain upper [Unknown]
  - Malaise [Unknown]
  - Nausea [Unknown]
  - Drug interaction [Unknown]

NARRATIVE: CASE EVENT DATE: 20181204
